APPROVED DRUG PRODUCT: COMBIVENT
Active Ingredient: ALBUTEROL SULFATE; IPRATROPIUM BROMIDE
Strength: EQ 0.09MG BASE/INH;0.018MG/INH
Dosage Form/Route: AEROSOL, METERED;INHALATION
Application: N020291 | Product #001
Applicant: BOEHRINGER INGELHEIM PHARMACEUTICALS INC
Approved: Oct 24, 1996 | RLD: No | RS: No | Type: DISCN